FAERS Safety Report 6181765-8 (Version None)
Quarter: 2009Q2

REPORT INFORMATION
  Report Type: 
  Country: None (occurrence: None)
  Receive Date: 20090506
  Receipt Date: 20090430
  Transmission Date: 20091009
  Serious: Yes (Other)
  Sender: FDA-Public Use
  Company Number: GB-ABBOTT-09P-167-0570951-00

PATIENT
  Sex: Female

DRUGS (1)
  1. GOPTEN [Suspect]
     Indication: BLOOD PRESSURE
     Dates: start: 20070101

REACTIONS (4)
  - ADVERSE DRUG REACTION [None]
  - BLOOD PRESSURE INCREASED [None]
  - CHOKING [None]
  - ILL-DEFINED DISORDER [None]
